FAERS Safety Report 6258267-3 (Version None)
Quarter: 2009Q3

REPORT INFORMATION
  Report Type: 
  Country: None (occurrence: None)
  Receive Date: 20090707
  Receipt Date: 20090629
  Transmission Date: 20100115
  Serious: Yes (Other)
  Sender: FDA-Public Use
  Company Number: DE-BAYER-200920513GPV

PATIENT
  Age: 45 Year
  Sex: Female

DRUGS (2)
  1. MIRENA [Suspect]
     Indication: CONTRACEPTION
     Route: 015
     Dates: start: 20031001, end: 20080101
  2. MIRENA [Suspect]
     Route: 015
     Dates: start: 20081215

REACTIONS (5)
  - C-REACTIVE PROTEIN INCREASED [None]
  - HEPATIC ENZYME INCREASED [None]
  - LEUKOCYTOSIS [None]
  - MUSCULOSKELETAL PAIN [None]
  - THROMBOCYTOSIS [None]
